FAERS Safety Report 10126887 (Version 2)
Quarter: 2015Q1

REPORT INFORMATION
  Report Type: Other
  Country: US (occurrence: US)
  Receive Date: 20140428
  Receipt Date: 20150217
  Transmission Date: 20150720
  Serious: Yes (Hospitalization, Other)
  Sender: FDA-Public Use
  Company Number: US-GSKPPD-2014GSK029985

PATIENT
  Age: 64 Year
  Sex: Male

DRUGS (9)
  1. DIOVAN [Concomitant]
     Active Substance: VALSARTAN
  2. ALTACE [Concomitant]
     Active Substance: RAMIPRIL
  3. COREG CR [Concomitant]
     Active Substance: CARVEDILOL PHOSPHATE
  4. AVANDIA [Suspect]
     Active Substance: ROSIGLITAZONE MALEATE
     Indication: DIABETES MELLITUS
     Dosage: AVANDIA WAS NOT LISTED AMONG THE PATIENTS RECORDS REVIEWED
     Route: 048
  5. ASPIRIN. [Concomitant]
     Active Substance: ASPIRIN
  6. IMDUR [Concomitant]
     Active Substance: ISOSORBIDE MONONITRATE
  7. LASIX [Concomitant]
     Active Substance: FUROSEMIDE
  8. PLAVIX [Concomitant]
     Active Substance: CLOPIDOGREL BISULFATE
  9. ZOCOR [Concomitant]
     Active Substance: SIMVASTATIN

REACTIONS (1)
  - Angina unstable [Unknown]

NARRATIVE: CASE EVENT DATE: 20070908
